FAERS Safety Report 7341107-9 (Version None)
Quarter: 2011Q1

REPORT INFORMATION
  Report Type: 
  Country: None (occurrence: None)
  Receive Date: 20110309
  Receipt Date: 20101007
  Transmission Date: 20110831
  Serious: Yes (Other)
  Sender: FDA-Public Use
  Company Number: A0886480A

PATIENT
  Age: 55 Year
  Sex: Female

DRUGS (1)
  1. AVANDIA [Suspect]
     Dosage: 4MG TWICE PER DAY
     Route: 048
     Dates: start: 20000101, end: 20070901

REACTIONS (4)
  - EJECTION FRACTION ABNORMAL [None]
  - CARDIOMYOPATHY [None]
  - SILENT MYOCARDIAL INFARCTION [None]
  - CARDIAC PACEMAKER INSERTION [None]
